FAERS Safety Report 25706548 (Version 1)
Quarter: 2025Q3

REPORT INFORMATION
  Report Type: Spontaneous
  Country: US (occurrence: US)
  Receive Date: 20250820
  Receipt Date: 20250820
  Transmission Date: 20251021
  Serious: No
  Sender: CATALYST PHARMA
  Company Number: US-CATALYST PHARMACEUTICALS-US-CATA-25-00809

PATIENT
  Sex: Male
  Weight: 54.989 kg

DRUGS (8)
  1. AGAMREE [Suspect]
     Active Substance: VAMOROLONE
     Indication: Duchenne muscular dystrophy
     Dosage: 6.6. ML DAILY
     Route: 048
     Dates: start: 20240327
  2. AGAMREE [Suspect]
     Active Substance: VAMOROLONE
     Dosage: 7.5 ML DAILY
     Route: 048
     Dates: start: 20250513
  3. LISINOPRIL [Concomitant]
     Active Substance: LISINOPRIL
     Indication: Cardiovascular event prophylaxis
     Dosage: 5 MG DAILY
     Route: 065
  4. GUMMY MULTIVITAMIN [Concomitant]
     Indication: Hypovitaminosis
     Dosage: UNK, DAILY
     Route: 065
  5. CULTURELLE KIDS PROBIOTIC [Concomitant]
     Indication: Gastrointestinal disorder
     Dosage: UNK, DAILY
     Route: 065
  6. CALCIUM\CHOLECALCIFEROL [Concomitant]
     Active Substance: CALCIUM\CHOLECALCIFEROL
     Indication: Hypovitaminosis
     Dosage: UNK, DAILY
     Route: 065
  7. RIZATRIPTAN BENZOATE [Concomitant]
     Active Substance: RIZATRIPTAN BENZOATE
     Indication: Migraine
     Route: 065
  8. ONDANSETRON [Concomitant]
     Active Substance: ONDANSETRON
     Indication: Nausea
     Dosage: UNK, EVERY 6 HOURS
     Route: 065

REACTIONS (2)
  - Nasopharyngitis [Recovered/Resolved]
  - Vomiting [Recovered/Resolved]
